FAERS Safety Report 5497464-1 (Version None)
Quarter: 2007Q4

REPORT INFORMATION
  Report Type: 
  Country: None (occurrence: None)
  Receive Date: 20071025
  Receipt Date: 20061117
  Transmission Date: 20080405
  Serious: No
  Sender: FDA-Public Use
  Company Number: A0627953A

PATIENT
  Age: 63 Year
  Sex: Male

DRUGS (11)
  1. ADVAIR DISKUS 100/50 [Suspect]
     Indication: ASTHMA
     Dosage: 2PUFF TWICE PER DAY
     Route: 055
     Dates: start: 20061112
  2. PLAVIX [Concomitant]
  3. UNKNOWN MEDICATION [Concomitant]
  4. TARKA [Concomitant]
  5. ATENOLOL [Concomitant]
  6. PEPCID [Concomitant]
  7. XANAX [Concomitant]
  8. ZOLOFT [Concomitant]
  9. MULTI-VITAMIN [Concomitant]
  10. CRESTOR [Concomitant]
  11. NITROGLYCERIN [Concomitant]

REACTIONS (2)
  - DIZZINESS [None]
  - NAUSEA [None]
